FAERS Safety Report 9279055 (Version 1)
Quarter: 2012Q4

REPORT INFORMATION
  Report Type: Spontaneous
  Country: CA (occurrence: None)
  Receive Date: 20121203
  Receipt Date: 20121203
  Transmission Date: 20130627
  Serious: Yes (Other)
  Sender: FDA-Public Use
  Company Number: 2012033844

PATIENT
  Age: 47 Year
  Sex: Female

DRUGS (11)
  1. HIZENTRA (IMMUNOGLOBULIN HUMAN NORMAL) [Suspect]
     Indication: PRIMARY IMMUNODEFICIENCY SYNDROME
     Dosage: total
     Route: 058
     Dates: start: 20120604, end: 20120604
  2. HIZENTRA (IMMUNOGLOBULIN HUMAN NORMAL) [Suspect]
     Indication: PRIMARY IMMUNODEFICIENCY SYNDROME
     Dosage: total
     Route: 058
     Dates: start: 20120605, end: 20120605
  3. HIZENTRA (IMMUNOGLOBULIN HUMAN NORMAL) [Suspect]
     Indication: PRIMARY IMMUNODEFICIENCY SYNDROME
     Dosage: total
     Route: 058
     Dates: start: 20120606, end: 20120606
  4. HIZENTRA (IMMUNOGLOBULIN HUMAN NORMAL) [Suspect]
     Indication: PRIMARY IMMUNODEFICIENCY SYNDROME
     Dosage: total
     Route: 058
     Dates: start: 20120611, end: 20120611
  5. HIZENTRA (IMMUNOGLOBULIN HUMAN NORMAL) [Suspect]
     Indication: PRIMARY IMMUNODEFICIENCY SYNDROME
     Dosage: Total
     Route: 058
     Dates: start: 20120613, end: 20120613
  6. HIZENTRA (IMMUNOGLOBULIN HUMAN NORMAL) [Suspect]
     Indication: PRIMARY IMMUNODEFICIENCY SYNDROME
     Dates: start: 20120614, end: 20120614
  7. HIZENTRA (IMMUNOGLOBULIN HUMAN NORMAL) [Suspect]
     Indication: PRIMARY IMMUNODEFICIENCY SYNDROME
     Dates: start: 20120620, end: 20120620
  8. HIZENTRA (IMMUNOGLOBULIN HUMAN NORMAL) [Suspect]
     Indication: PRIMARY IMMUNODEFICIENCY SYNDROME
     Dosage: Total
     Route: 058
     Dates: start: 20120627, end: 20120627
  9. HIZENTRA (IMMUNOGLOBULIN HUMAN NORMAL) [Suspect]
     Indication: PRIMARY IMMUNODEFICIENCY SYNDROME
     Dosage: Total
     Route: 058
     Dates: start: 20120711, end: 20120711
  10. HIZENTRA (IMMUNOGLOBULIN HUMAN NORMAL) [Suspect]
     Indication: PRIMARY IMMUNODEFICIENCY SYNDROME
     Dosage: Total
     Route: 058
     Dates: start: 20120712, end: 20120712
  11. HIZENTRA (IMMUNOGLOBULIN HUMAN NORMAL) [Suspect]
     Indication: PRIMARY IMMUNODEFICIENCY SYNDROME
     Dosage: Total
     Route: 058
     Dates: start: 20120725, end: 20120725

REACTIONS (17)
  - Anaphylactic reaction [None]
  - Muscle disorder [None]
  - Infusion site reaction [None]
  - Glossodynia [None]
  - Burning sensation [None]
  - Paraesthesia oral [None]
  - Swollen tongue [None]
  - Paraesthesia [None]
  - Dry mouth [None]
  - Throat irritation [None]
  - Anxiety [None]
  - Pain in jaw [None]
  - Throat irritation [None]
  - Pain [None]
  - Musculoskeletal pain [None]
  - Headache [None]
  - Headache [None]
